FAERS Safety Report 24764845 (Version 1)
Quarter: 2024Q4

REPORT INFORMATION
  Report Type: Spontaneous
  Country: US (occurrence: US)
  Receive Date: 20241223
  Receipt Date: 20241223
  Transmission Date: 20250115
  Serious: No
  Sender: Haleon PLC
  Company Number: US-HALEON-2217299

PATIENT
  Age: 87 Year
  Sex: Female

DRUGS (1)
  1. SENSODYNE CLINICAL WHITE ENAMEL STRENGTHENING [Suspect]
     Active Substance: POTASSIUM NITRATE\SODIUM FLUORIDE
     Indication: Oral discomfort
     Dosage: TIME INTERVAL: 0.33333333 DAYS
     Dates: start: 20241204, end: 20241217

REACTIONS (6)
  - Tongue discomfort [Recovered/Resolved]
  - Product use in unapproved indication [Unknown]
  - Lip exfoliation [Recovered/Resolved]
  - Chapped lips [Recovered/Resolved]
  - Glossodynia [Recovered/Resolved]
  - Oral discomfort [Recovered/Resolved]

NARRATIVE: CASE EVENT DATE: 20241204
